FAERS Safety Report 7821302-2 (Version None)
Quarter: 2011Q4

REPORT INFORMATION
  Report Type: 
  Country: None (occurrence: None)
  Receive Date: 20111018
  Receipt Date: 20101112
  Transmission Date: 20120403
  Serious: No
  Sender: FDA-Public Use
  Company Number: US-ASTRAZENECA-2010SE54273

PATIENT
  Age: 53 Year
  Sex: Male

DRUGS (1)
  1. SYMBICORT [Suspect]
     Dosage: 320 MCG, TWO TIMES A DAY.
     Route: 055
     Dates: start: 20101101, end: 20101101

REACTIONS (1)
  - AGGRESSION [None]
